FAERS Safety Report 6993953-9 (Version None)
Quarter: 2010Q3

REPORT INFORMATION
  Report Type: 
  Country: None (occurrence: None)
  Receive Date: 20100917
  Receipt Date: 20091216
  Transmission Date: 20110219
  Serious: Yes (Hospitalization)
  Sender: FDA-Public Use
  Company Number: US-ASTRAZENECA-2006UW11050

PATIENT
  Age: 45 Year
  Sex: Female
  Weight: 80.7 kg

DRUGS (28)
  1. SEROQUEL [Suspect]
     Indication: ANXIETY
     Route: 048
     Dates: start: 20010101
  2. SEROQUEL [Suspect]
     Indication: DEPRESSION
     Route: 048
     Dates: start: 20010101
  3. SEROQUEL [Suspect]
     Indication: BIPOLAR DISORDER
     Route: 048
     Dates: start: 20010101
  4. SEROQUEL [Suspect]
     Indication: SLEEP DISORDER
     Route: 048
     Dates: start: 20010101
  5. SEROQUEL [Suspect]
     Dosage: 25 - 400 MG DAILY
     Route: 048
     Dates: start: 20020521
  6. SEROQUEL [Suspect]
     Dosage: 25 - 400 MG DAILY
     Route: 048
     Dates: start: 20020521
  7. SEROQUEL [Suspect]
     Dosage: 25 - 400 MG DAILY
     Route: 048
     Dates: start: 20020521
  8. SEROQUEL [Suspect]
     Dosage: 25 - 400 MG DAILY
     Route: 048
     Dates: start: 20020521
  9. GEODON [Suspect]
     Dates: start: 20010101
  10. GEODON [Suspect]
     Route: 048
     Dates: start: 20051101
  11. PAXIL [Concomitant]
     Indication: DEPRESSION
     Dosage: 10 - 20 MG DAILY
     Dates: start: 20010611
  12. TRAZODONE HCL [Concomitant]
     Route: 048
     Dates: start: 20070125
  13. VALIUM [Concomitant]
     Indication: PAIN
     Dosage: 20 - 30 MG DAILY
     Route: 048
     Dates: start: 20010521
  14. VICODIN [Concomitant]
     Indication: PAIN
     Dosage: 1 TAB TWO TIMES A DAY, 1 TAB EVERY 4 HOURS
     Route: 048
     Dates: start: 20030915
  15. PREMARIN [Concomitant]
     Dosage: 0.625 - 1.25 MG DAILY
     Dates: start: 20010521
  16. DEPAKOTE [Concomitant]
     Dates: start: 20020612
  17. ZOLOFT [Concomitant]
     Route: 048
     Dates: start: 20070125
  18. LOTREL [Concomitant]
     Dosage: STRENGTH - 5/10 MG, DOSE - 5 / 10 MG DAILY
     Route: 048
     Dates: start: 20070125
  19. ZESTRIL [Concomitant]
     Indication: CARDIAC FAILURE CONGESTIVE
     Dates: start: 20031020
  20. DITROPAN [Concomitant]
     Indication: STRESS URINARY INCONTINENCE
     Dosage: 5 - 15 MG DAILY
     Dates: start: 20010521
  21. WELLBUTRIN [Concomitant]
     Route: 048
     Dates: start: 20051101
  22. LASIX [Concomitant]
     Indication: CARDIAC FAILURE CONGESTIVE
     Route: 048
     Dates: start: 20040308
  23. HYDROCHLOROTHIAZIDE [Concomitant]
     Indication: HYPERTENSION
     Route: 048
     Dates: start: 20020802
  24. HYDROCHLOROTHIAZIDE [Concomitant]
     Indication: OEDEMA PERIPHERAL
     Route: 048
     Dates: start: 20020802
  25. ALBUTEROL [Concomitant]
     Dosage: 2 PUFFS P.O, 1 MDI EVERY 4 HRS AS REQUIRED
     Route: 048
     Dates: start: 20010521
  26. VIOXX [Concomitant]
     Dates: start: 20020612
  27. VISTARIL [Concomitant]
     Route: 048
     Dates: start: 20051101
  28. RISPERDAL [Concomitant]
     Dates: start: 20050516

REACTIONS (4)
  - DIABETES MELLITUS [None]
  - HYPOGLYCAEMIA [None]
  - TYPE 1 DIABETES MELLITUS [None]
  - TYPE 2 DIABETES MELLITUS [None]
